FAERS Safety Report 4544876-6 (Version None)
Quarter: 2005Q1

REPORT INFORMATION
  Report Type: 
  Country: None (occurrence: None)
  Receive Date: 20050104
  Receipt Date: 20041208
  Transmission Date: 20050727
  Serious: Yes (Hospitalization)
  Sender: FDA-Public Use
  Company Number: DEU-2004-0001176

PATIENT
  Age: 56 Year
  Sex: Female

DRUGS (15)
  1. UNIPHYLLIN 600 MG, RETARDTABLETTEN (THEOPHYLLINE) CR TABLET [Suspect]
     Dosage: 600 MG, DAILY, ORAL
     Route: 048
  2. SANDIMMUNE [Suspect]
     Indication: ASTHMA
     Dosage: 75 MG, BID, ORAL
     Route: 048
     Dates: start: 20020101, end: 20041029
  3. TOLVON (MIANSERIN HYDROCHLORIDE) TABLET [Suspect]
     Indication: DEPRESSION
     Dosage: 30 MG, DAILY, ORAL
     Route: 048
     Dates: start: 20041010
  4. SEROPRAM (CITALOPRAM HYDROBROMIDE) TABLET [Suspect]
     Indication: DEPRESSION
     Dosage: 1 TABLET, DAILY, ORAL
     Route: 048
     Dates: start: 19990101
  5. ZESTRIL [Suspect]
     Dosage: 20 MG, DAILY, ORAL
     Route: 048
     Dates: end: 20041029
  6. SERETIDE DISKUS (FLUTICASONE PROPIONATE, SALMETEROL XINAFOATE) [Suspect]
     Indication: ASTHMA
     Dosage: 500 MCG, BID, INHALATION
     Route: 055
  7. SINGULAIR ^DIECKMANN^ (MONTELUKAST SODIUM) [Concomitant]
  8. PLAVIX [Concomitant]
  9. PRAVASTATIN [Concomitant]
  10. PANTOPRAZOL (PANTOPRAZOLE SODIUM) [Concomitant]
  11. PREDNISONE [Concomitant]
  12. FOSAMAX [Concomitant]
  13. CALCIMAGON-D3(CALCIUM CARBONATE, COLECALCIFEROL) [Concomitant]
  14. NORVASC [Concomitant]
  15. ADALAT [Concomitant]

REACTIONS (13)
  - BLOOD CHOLESTEROL INCREASED [None]
  - BLOOD MAGNESIUM DECREASED [None]
  - CREATININE RENAL CLEARANCE DECREASED [None]
  - DIPLOPIA [None]
  - ELECTROCARDIOGRAM QT PROLONGED [None]
  - EYELID PTOSIS [None]
  - HEMIANOPIA [None]
  - HYPERCHOLESTEROLAEMIA [None]
  - HYPERTENSION [None]
  - MEDICATION ERROR [None]
  - OVERDOSE [None]
  - RENAL IMPAIRMENT [None]
  - SEROTONIN SYNDROME [None]
